FAERS Safety Report 25540062 (Version 1)
Quarter: 2025Q3

REPORT INFORMATION
  Report Type: Report from Study
  Country: US (occurrence: US)
  Receive Date: 20250710
  Receipt Date: 20250710
  Transmission Date: 20251021
  Serious: Yes (Hospitalization)
  Sender: XERIS PHARMACEUTICALS
  Company Number: US-BRIAN CONNER SVP QUALITY AND CHIEF COMPLIANCE OFFICER-2025XER00475

PATIENT
  Sex: Female

DRUGS (3)
  1. RECORLEV [Suspect]
     Active Substance: LEVOKETOCONAZOLE
     Indication: Cushing^s syndrome
     Route: 048
     Dates: start: 20230926
  2. RECORLEV [Suspect]
     Active Substance: LEVOKETOCONAZOLE
     Dosage: 300 MG, 1X/DAY(IN THE MORNING)
     Route: 048
     Dates: start: 20250618
  3. RECORLEV [Suspect]
     Active Substance: LEVOKETOCONAZOLE
     Dosage: 450 MG, 1X/DAY (AT NIGHT)
     Route: 048
     Dates: start: 20250618

REACTIONS (2)
  - Hospitalisation [Recovering/Resolving]
  - Product use issue [Recovering/Resolving]
